FAERS Safety Report 5479329-4 (Version None)
Quarter: 2007Q4

REPORT INFORMATION
  Report Type: 
  Country: None (occurrence: None)
  Receive Date: 20071003
  Receipt Date: 20070925
  Transmission Date: 20080405
  Serious: Yes (Hospitalization)
  Sender: FDA-Public Use
  Company Number: 2007-03024

PATIENT
  Age: 68 Year
  Sex: Male
  Weight: 71.7 kg

DRUGS (5)
  1. VELCADE [Suspect]
     Indication: MANTLE CELL LYMPHOMA
     Dosage: MG, IV BOLUS
     Route: 040
     Dates: start: 20061226
  2. CARDIZEM [Concomitant]
  3. VYTORIN [Concomitant]
  4. PREVACID [Concomitant]
  5. LEXAPRO [Concomitant]

REACTIONS (4)
  - ASCITES [None]
  - ASTHENIA [None]
  - DEHYDRATION [None]
  - NEPHROLITHIASIS [None]
